FAERS Safety Report 9416550 (Version 1)
Quarter: 2013Q3

REPORT INFORMATION
  Report Type: Spontaneous
  Country: US (occurrence: None)
  Receive Date: 20130719
  Receipt Date: 20130719
  Transmission Date: 20140515
  Serious: Yes (Hospitalization, Other)
  Sender: FDA-Public Use
  Company Number: AUR-APL-2013-06003

PATIENT
  Age: 62 Year
  Sex: Male

DRUGS (13)
  1. MIRTAZAPINE [Suspect]
     Indication: SCHIZOPHRENIA
  2. CLOZAPINE [Suspect]
  3. ACETAMINOPHEN (PARACETAMOL) [Concomitant]
  4. ALBUTEROL (SALBUTAMOL) [Concomitant]
  5. ATENOLOL (ATENOLOL) [Concomitant]
  6. BENZTROPINE (BENZATROPINE MESILATE) [Concomitant]
  7. BUDESONIDE (BUDESONIDE) [Concomitant]
  8. DOCUSATE (DOCUSATE) [Concomitant]
  9. FERROUS SULFATE (FERROUS SULFATE) [Concomitant]
  10. GEMFIBROZIL [Concomitant]
  11. LORAZEPAM (LORAZEPAM) [Concomitant]
  12. METFORMIN (METFORMIN) [Concomitant]
  13. OXYBUTYNIN (OXYBUTYNIN) [Concomitant]

REACTIONS (2)
  - Drug interaction [None]
  - Drug level increased [None]
